FAERS Safety Report 8332814-X (Version None)
Quarter: 2012Q2

REPORT INFORMATION
  Report Type: 
  Country: None (occurrence: None)
  Receive Date: 20120503
  Receipt Date: 20120425
  Transmission Date: 20120825
  Serious: Yes (Hospitalization, Other)
  Sender: FDA-Public Use
  Company Number: JP-VERTEX PHARMACEUTICALS INC.-AE-2012-003529

PATIENT
  Age: 49 Year
  Sex: Female

DRUGS (15)
  1. TELAVIC (TELAPREVIR) [Suspect]
     Indication: HEPATITIS C
     Route: 048
     Dates: start: 20120125, end: 20120301
  2. REBETOL [Concomitant]
     Route: 048
     Dates: start: 20120314
  3. TELAVIC (TELAPREVIR) [Suspect]
     Route: 048
  4. PEGINTERFERON ALFA-2B [Concomitant]
     Route: 058
     Dates: start: 20120314
  5. REBETOL [Concomitant]
     Indication: HEPATITIS C
     Route: 048
     Dates: start: 20120125, end: 20120228
  6. MUCOSTA [Concomitant]
     Route: 048
  7. SODIUM BICARBONATE [Concomitant]
     Route: 051
     Dates: start: 20120222, end: 20120229
  8. DESYREL [Concomitant]
     Route: 048
  9. LOXONIN [Concomitant]
     Route: 048
  10. TELAVIC (TELAPREVIR) [Suspect]
     Route: 048
     Dates: start: 20120302, end: 20120302
  11. REBETOL [Concomitant]
     Route: 048
     Dates: start: 20120229, end: 20120305
  12. PEGINTERFERON ALFA-2B [Concomitant]
     Indication: HEPATITIS C
     Route: 058
     Dates: start: 20120125, end: 20120229
  13. LEXAPRO [Concomitant]
     Route: 048
  14. APHTASOLON [Concomitant]
     Route: 051
     Dates: start: 20120215, end: 20120222
  15. PURSENNID [Concomitant]
     Route: 048

REACTIONS (2)
  - DIZZINESS [None]
  - ASTHENIA [None]
